FAERS Safety Report 18270913 (Version 1)
Quarter: 2020Q3

REPORT INFORMATION
  Report Type: Spontaneous
  Country: US (occurrence: US)
  Receive Date: 20200916
  Receipt Date: 20200916
  Transmission Date: 20201103
  Serious: No
  Sender: FDA-Public Use
  Company Number: NVSC2020US250700

PATIENT
  Age: 69 Year
  Sex: Male

DRUGS (1)
  1. GLATOPA [Suspect]
     Active Substance: GLATIRAMER ACETATE
     Indication: PRODUCT USED FOR UNKNOWN INDICATION
     Dosage: 3 DF, QW
     Route: 065

REACTIONS (2)
  - Dizziness [Unknown]
  - Palpitations [Unknown]

NARRATIVE: CASE EVENT DATE: 20200911
